FAERS Safety Report 18349143 (Version 2)
Quarter: 2020Q4

REPORT INFORMATION
  Report Type: Spontaneous
  Country: CN (occurrence: CN)
  Receive Date: 20201006
  Receipt Date: 20201015
  Transmission Date: 20210114
  Serious: Yes (Death, Other)
  Sender: FDA-Public Use
  Company Number: CN-SA-2020SA272840

PATIENT

DRUGS (2)
  1. DUPIXENT [Suspect]
     Active Substance: DUPILUMAB
     Indication: DERMATITIS ATOPIC
     Dosage: UNK, INJECTED WITH 300 MG INJECTION
     Dates: start: 20200906, end: 202009
  2. DUPIXENT [Suspect]
     Active Substance: DUPILUMAB
     Dosage: UNK,SECOND INJECTION
     Dates: start: 20200922

REACTIONS (5)
  - Cardio-respiratory arrest [Fatal]
  - Cough [Unknown]
  - Pyrexia [Unknown]
  - Haemoptysis [Unknown]
  - Decreased appetite [Unknown]

NARRATIVE: CASE EVENT DATE: 2020
